FAERS Safety Report 11635031 (Version 1)
Quarter: 2015Q4

REPORT INFORMATION
  Report Type: Spontaneous
  Country: US (occurrence: US)
  Receive Date: 20151015
  Receipt Date: 20151015
  Transmission Date: 20160304
  Serious: No
  Sender: FDA-Public Use
  Company Number: US-SA-2015SA047377

PATIENT
  Age: 30 Year
  Sex: Female

DRUGS (1)
  1. LUMIZYME [Suspect]
     Active Substance: ALGLUCOSIDASE ALFA
     Route: 041
     Dates: start: 20150211

REACTIONS (6)
  - Abdominal distension [Recovered/Resolved]
  - Nausea [Recovered/Resolved]
  - Pruritus [Unknown]
  - Abdominal pain [Recovered/Resolved]
  - Sinus congestion [Unknown]
  - Headache [Recovering/Resolving]

NARRATIVE: CASE EVENT DATE: 20150211
